FAERS Safety Report 23892048 (Version 1)
Quarter: 2024Q2

REPORT INFORMATION
  Report Type: Spontaneous
  Country: US (occurrence: None)
  Receive Date: 20240524
  Receipt Date: 20240524
  Transmission Date: 20240716
  Serious: No
  Sender: FDA-Public Use
  Company Number: US-ROCHE-3345585

PATIENT
  Sex: Female

DRUGS (1)
  1. ACTEMRA [Suspect]
     Active Substance: TOCILIZUMAB
     Indication: Psoriatic arthropathy
     Dosage: ON WEEKS 0, 2 AND 4, STRENGTH: 200MG/10 ML AND 400MG/10 ML
     Route: 042
     Dates: start: 202303

REACTIONS (7)
  - Off label use [Unknown]
  - Headache [Unknown]
  - Feeling hot [Unknown]
  - Erythema [Unknown]
  - Hyperhidrosis [Unknown]
  - Pruritus [Unknown]
  - Oral disorder [Unknown]
